FAERS Safety Report 9128133 (Version 1)
Quarter: 2013Q1

REPORT INFORMATION
  Report Type: Spontaneous
  Country: US (occurrence: US)
  Receive Date: 20130228
  Receipt Date: 20130228
  Transmission Date: 20140127
  Serious: Yes (Other)
  Sender: FDA-Public Use
  Company Number: US-ASTRAZENECA-2011SE75314

PATIENT
  Age: 79 Year
  Sex: Female

DRUGS (3)
  1. PULMICORT FLEXHALER [Suspect]
     Indication: LUNG NEOPLASM MALIGNANT
     Dosage: TWO INHALATIONS, TWO TIMES A DAY
     Route: 055
  2. PULMICORT FLEXHALER [Suspect]
     Indication: CHRONIC OBSTRUCTIVE PULMONARY DISEASE
     Dosage: TWO INHALATIONS, TWO TIMES A DAY
     Route: 055
  3. NEXIUM [Suspect]
     Route: 048

REACTIONS (2)
  - Lung neoplasm malignant [Unknown]
  - Off label use [Unknown]
